FAERS Safety Report 6725414-6 (Version None)
Quarter: 2010Q2

REPORT INFORMATION
  Report Type: 
  Country: None (occurrence: None)
  Receive Date: 20100514
  Receipt Date: 20100430
  Transmission Date: 20101027
  Serious: Yes (Hospitalization)
  Sender: FDA-Public Use
  Company Number: US-ELI_LILLY_AND_COMPANY-US201005000535

PATIENT
  Sex: Female

DRUGS (15)
  1. FORTEO [Suspect]
     Indication: OSTEOPOROSIS
     Dosage: 20 MG, DAILY (1/D)
     Dates: start: 20100401
  2. GABAPENTIN [Concomitant]
     Indication: PAIN
  3. VITAMIN B COMPLEX CAP [Concomitant]
  4. DEMEROL [Concomitant]
  5. REMERON [Concomitant]
  6. CRESTOR [Concomitant]
  7. MENEST [Concomitant]
  8. SELENIUM [Concomitant]
  9. VITAMIN D [Concomitant]
  10. CALCIUM                                 /N/A/ [Concomitant]
     Dosage: UNK, DAILY (1/D)
  11. VITAMIN E [Concomitant]
  12. LOVAZA [Concomitant]
  13. SOY ISOFLAVONES [Concomitant]
  14. VITAMIN C [Concomitant]
  15. ATIVAN [Concomitant]
     Dosage: UNK, AS NEEDED

REACTIONS (3)
  - DIARRHOEA [None]
  - NAUSEA [None]
  - SURGERY [None]
